FAERS Safety Report 8261648-X (Version None)
Quarter: 2012Q2

REPORT INFORMATION
  Report Type: 
  Country: None (occurrence: None)
  Receive Date: 20120405
  Receipt Date: 20120405
  Transmission Date: 20120825
  Serious: Yes (Death)
  Sender: FDA-Public Use
  Company Number: None

PATIENT
  Age: 78 Year
  Sex: Male
  Weight: 100.5 kg

DRUGS (1)
  1. PRADAXA [Suspect]
     Indication: ATRIAL FIBRILLATION
     Dosage: 150 MG
     Route: 048
     Dates: start: 20110222, end: 20120403

REACTIONS (11)
  - DIZZINESS [None]
  - BRAIN HERNIATION [None]
  - SYNCOPE [None]
  - BRAIN OEDEMA [None]
  - SUBARACHNOID HAEMORRHAGE [None]
  - ENCEPHALOPATHY [None]
  - VIITH NERVE PARALYSIS [None]
  - MENTAL STATUS CHANGES [None]
  - DYSARTHRIA [None]
  - MENTAL DISORDER [None]
  - HAEMORRHAGE INTRACRANIAL [None]
